FAERS Safety Report 13343002 (Version 1)
Quarter: 2017Q1

REPORT INFORMATION
  Report Type: Spontaneous
  Country: US (occurrence: US)
  Receive Date: 20170316
  Receipt Date: 20170316
  Transmission Date: 20170428
  Serious: Yes (Other)
  Sender: FDA-Public Use
  Company Number: US-ELI_LILLY_AND_COMPANY-US201703003755

PATIENT
  Age: 72 Year
  Sex: Female

DRUGS (1)
  1. RALOXIFENE HYDROCHLORIDE. [Suspect]
     Active Substance: RALOXIFENE HYDROCHLORIDE
     Indication: PROPHYLAXIS
     Dosage: 60 MG, QD
     Route: 065
     Dates: start: 20170129, end: 20170220

REACTIONS (6)
  - Carbohydrate antigen 15-3 increased [Unknown]
  - Muscular weakness [Recovering/Resolving]
  - Carcinoembryonic antigen increased [Unknown]
  - Arthralgia [Recovering/Resolving]
  - Myalgia [Recovering/Resolving]
  - Mobility decreased [Recovering/Resolving]

NARRATIVE: CASE EVENT DATE: 20170209
